FAERS Safety Report 8824605 (Version 1)
Quarter: 2012Q4

REPORT INFORMATION
  Report Type: Report from Study
  Country: US (occurrence: US)
  Receive Date: 20121004
  Receipt Date: 20121004
  Transmission Date: 20130627
  Serious: Yes (Hospitalization)
  Sender: FDA-Public Use
  Company Number: US-US-EMD SERONO, INC.-7154720

PATIENT
  Age: 60 Year
  Sex: Male

DRUGS (2)
  1. REBIF [Suspect]
     Indication: PRODUCT USED FOR UNKNOWN INDICATION
     Route: 058
     Dates: start: 20120202
  2. IBUPROFEN [Concomitant]
     Indication: PREMEDICATION

REACTIONS (6)
  - Dysuria [Recovering/Resolving]
  - Fall [Recovering/Resolving]
  - Muscle spasticity [Recovering/Resolving]
  - Altered state of consciousness [Recovering/Resolving]
  - Feeling hot [Unknown]
  - Injection site erythema [Unknown]
